FAERS Safety Report 7962577-9 (Version None)
Quarter: 2011Q4

REPORT INFORMATION
  Report Type: 
  Country: None (occurrence: None)
  Receive Date: 20111207
  Receipt Date: 20090422
  Transmission Date: 20120403
  Serious: Yes (Other)
  Sender: FDA-Public Use
  Company Number: PHHY2009ES15073

PATIENT
  Age: 46 Year
  Sex: Female

DRUGS (1)
  1. ZADITEN [Suspect]
     Dosage: UNK
     Route: 047
     Dates: start: 20090310, end: 20090312

REACTIONS (2)
  - NERVOUSNESS [None]
  - TACHYCARDIA [None]
